FAERS Safety Report 7094070-2 (Version None)
Quarter: 2010Q4

REPORT INFORMATION
  Report Type: 
  Country: None (occurrence: None)
  Receive Date: 20101109
  Receipt Date: 20101109
  Transmission Date: 20110411
  Serious: Yes (Other)
  Sender: FDA-Public Use
  Company Number: None

PATIENT
  Age: 65 Year
  Sex: Female
  Weight: 68.0396 kg

DRUGS (1)
  1. FLECTOR [Suspect]
     Indication: BURSITIS
     Dosage: 1 PATCH EVERY 12 HOURS TRANSDERMAL
     Route: 062
     Dates: start: 20101021, end: 20101027

REACTIONS (6)
  - ABDOMINAL PAIN [None]
  - ALANINE AMINOTRANSFERASE INCREASED [None]
  - ASPARTATE AMINOTRANSFERASE INCREASED [None]
  - CHILLS [None]
  - CHROMATURIA [None]
  - PYREXIA [None]
